FAERS Safety Report 16223307 (Version 1)
Quarter: 2019Q2

REPORT INFORMATION
  Report Type: Spontaneous
  Country: US (occurrence: US)
  Receive Date: 20190422
  Receipt Date: 20190422
  Transmission Date: 20190711
  Serious: No
  Sender: FDA-Public Use
  Company Number: US-PFIZER INC-2019164095

PATIENT
  Sex: Male
  Weight: 163.26 kg

DRUGS (2)
  1. VIAGRA [Suspect]
     Active Substance: SILDENAFIL CITRATE
     Dosage: 50 MG, UNK(AND ONE HOUR LATER HE TOOK ANOTHER 50MG)
  2. VIAGRA [Suspect]
     Active Substance: SILDENAFIL CITRATE
     Dosage: 50 MG, UNK (HE TOOK 1 50MG TABLET)

REACTIONS (3)
  - Off label use [Unknown]
  - Drug ineffective [Unknown]
  - Headache [Unknown]
